FAERS Safety Report 4784850-8 (Version None)
Quarter: 2005Q3

REPORT INFORMATION
  Report Type: 
  Country: None (occurrence: None)
  Receive Date: 20050930
  Receipt Date: 20050921
  Transmission Date: 20060218
  Serious: Yes (Hospitalization, Other)
  Sender: FDA-Public Use
  Company Number: PHBS2005BR14017

PATIENT
  Age: 28 Year
  Sex: Female
  Weight: 96 kg

DRUGS (5)
  1. TEGRETOL [Suspect]
     Indication: BIPOLAR DISORDER
     Route: 048
     Dates: start: 20050501
  2. TEGRETOL [Suspect]
     Dosage: 5 TAB/DAY
     Route: 048
     Dates: start: 20050101, end: 20050920
  3. TEGRETOL [Suspect]
     Indication: BIPOLAR DISORDER
     Route: 048
     Dates: start: 20050920
  4. LITHIUM [Concomitant]
     Indication: AFFECTIVE DISORDER
     Dosage: 300 MG, QID
     Route: 048
     Dates: start: 20050801
  5. EUTHYROX [Concomitant]
     Dosage: 75 UG, QD
     Route: 048

REACTIONS (11)
  - DEPRESSION [None]
  - DIZZINESS [None]
  - DRY MOUTH [None]
  - DYSGEUSIA [None]
  - DYSPEPSIA [None]
  - HYPOAESTHESIA ORAL [None]
  - INSOMNIA [None]
  - NAUSEA [None]
  - SOMNOLENCE [None]
  - TREMOR [None]
  - WEIGHT INCREASED [None]
